FAERS Safety Report 6035667-8 (Version None)
Quarter: 2009Q1

REPORT INFORMATION
  Report Type: 
  Country: None (occurrence: None)
  Receive Date: 20090113
  Receipt Date: 20090108
  Transmission Date: 20090719
  Serious: Yes (Death, Hospitalization)
  Sender: FDA-Public Use
  Company Number: PHBS2008RU06715

PATIENT
  Age: 54 Year
  Sex: Male

DRUGS (3)
  1. MYFORTIC [Suspect]
     Indication: RENAL TRANSPLANT
     Dosage: 1440 MG/DAY
  2. CYCLOSPORINE [Suspect]
     Indication: RENAL TRANSPLANT
     Dosage: 150 MG/DAY
  3. METHYLPREDNISOLONE 16MG TAB [Suspect]
     Indication: RENAL TRANSPLANT
     Dosage: 20 MG/DAY

REACTIONS (27)
  - AGRANULOCYTOSIS [None]
  - ANAEMIA [None]
  - AORTIC DILATATION [None]
  - AORTIC THROMBOSIS [None]
  - CHILLS [None]
  - DEEP VEIN THROMBOSIS [None]
  - DYSPNOEA [None]
  - FATIGUE [None]
  - HEPATIC ENZYME [None]
  - HYPERCALCAEMIA [None]
  - HYPERPROTEINAEMIA [None]
  - HYPERTROPHIC CARDIOMYOPATHY [None]
  - LOSS OF CONSCIOUSNESS [None]
  - MULTI-ORGAN DISORDER [None]
  - MULTIPLE MYELOMA [None]
  - OEDEMA PERIPHERAL [None]
  - OESOPHAGITIS [None]
  - PAIN IN EXTREMITY [None]
  - PALPITATIONS [None]
  - PNEUMONIA [None]
  - PYREXIA [None]
  - SEPSIS [None]
  - SEPTIC SHOCK [None]
  - SINUS TACHYCARDIA [None]
  - SYNCOPE [None]
  - TYPE 2 DIABETES MELLITUS [None]
  - VENTRICULAR HYPERTROPHY [None]
